FAERS Safety Report 12247007 (Version 1)
Quarter: 2016Q2

REPORT INFORMATION
  Report Type: Report from Study
  Country: BR (occurrence: BR)
  Receive Date: 20160407
  Receipt Date: 20160407
  Transmission Date: 20160815
  Serious: Yes (Other)
  Sender: FDA-Public Use
  Company Number: PHHY2016BR044991

PATIENT
  Age: 79 Year
  Sex: Female
  Weight: 46 kg

DRUGS (1)
  1. ACLASTA [Suspect]
     Active Substance: ZOLEDRONIC ACID
     Indication: PRODUCT USED FOR UNKNOWN INDICATION
     Route: 042
     Dates: start: 20150331

REACTIONS (12)
  - Fall [Unknown]
  - Spinal pain [Unknown]
  - Euphoric mood [Unknown]
  - Underweight [Unknown]
  - Dysstasia [Unknown]
  - Limb injury [Unknown]
  - Pain [Unknown]
  - Pain in extremity [Unknown]
  - Bone fissure [Unknown]
  - Stubbornness [Unknown]
  - Back pain [Unknown]
  - Malaise [Unknown]

NARRATIVE: CASE EVENT DATE: 20160313
